FAERS Safety Report 8406986-2 (Version None)
Quarter: 2012Q2

REPORT INFORMATION
  Report Type: 
  Country: None (occurrence: None)
  Receive Date: 20120604
  Receipt Date: 20120530
  Transmission Date: 20120825
  Serious: Yes (Death)
  Sender: FDA-Public Use
  Company Number: FR-ROCHE-1073804

PATIENT
  Age: 53 Year
  Sex: Male

DRUGS (10)
  1. COPEGUS [Suspect]
     Dosage: INITIAL DOSE
  2. GLIMEPIRIDE [Concomitant]
  3. ASPIRIN [Concomitant]
  4. INCIVO [Suspect]
     Indication: HEPATITIS C
     Dates: start: 20120120
  5. COPEGUS [Suspect]
     Indication: HEPATITIS C
     Dosage: DOSE DECREASED
     Dates: start: 20120120
  6. METFORMIN HCL [Concomitant]
  7. RISPERDAL [Concomitant]
  8. PEGINTERFERON ALFA-2A [Suspect]
     Indication: HEPATITIS C
     Dates: start: 20120120
  9. LEPTICUR [Concomitant]
  10. LANTUS [Concomitant]

REACTIONS (1)
  - DEATH [None]
